FAERS Safety Report 12226746 (Version 1)
Quarter: 2016Q1

REPORT INFORMATION
  Report Type: Spontaneous
  Country: US (occurrence: US)
  Receive Date: 20160331
  Receipt Date: 20160331
  Transmission Date: 20160526
  Serious: No
  Sender: FDA-Public Use
  Company Number: US-ELI_LILLY_AND_COMPANY-US201603010076

PATIENT
  Sex: Female

DRUGS (4)
  1. ZYPREXA [Suspect]
     Active Substance: OLANZAPINE
     Indication: PSYCHOTIC BEHAVIOUR
     Dosage: 20 MG, QD
  2. ATIVAN [Concomitant]
     Active Substance: LORAZEPAM
  3. LITHIUM. [Concomitant]
     Active Substance: LITHIUM
  4. ZYPREXA [Suspect]
     Active Substance: OLANZAPINE
     Dosage: 15 MG, BID

REACTIONS (2)
  - Prescribed overdose [Not Recovered/Not Resolved]
  - Intentional product misuse [Recovered/Resolved]
